FAERS Safety Report 5288340-8 (Version None)
Quarter: 2007Q2

REPORT INFORMATION
  Report Type: 
  Country: None (occurrence: None)
  Receive Date: 20070405
  Receipt Date: 20070328
  Transmission Date: 20071010
  Serious: Yes (Other)
  Sender: FDA-Public Use
  Company Number: 2007GB00669

PATIENT
  Age: 76 Year
  Sex: Female

DRUGS (10)
  1. OMEPRAZOLE [Suspect]
     Indication: DUODENITIS
     Route: 048
     Dates: start: 19980101, end: 20070101
  2. ADCAL-D3 [Concomitant]
     Indication: HYPOKALAEMIA
     Route: 048
  3. ASPIRIN [Concomitant]
  4. ATORVASTATIN CALCIUM [Concomitant]
  5. ATROVENT [Concomitant]
  6. GABAPENTIN [Concomitant]
     Indication: PAIN
     Route: 048
  7. GLYCERYL TRINITRATE [Concomitant]
  8. LOSARTAN POSTASSIUM [Concomitant]
  9. QUININE SULFATE [Concomitant]
     Indication: MUSCLE SPASMS
     Route: 048
  10. SERETIDE [Concomitant]

REACTIONS (3)
  - HYPOCALCAEMIA [None]
  - HYPOKALAEMIA [None]
  - HYPOMAGNESAEMIA [None]
